APPROVED DRUG PRODUCT: CLOBAZAM
Active Ingredient: CLOBAZAM
Strength: 20MG
Dosage Form/Route: TABLET;ORAL
Application: A213404 | Product #002 | TE Code: AB
Applicant: MSN LABORATORIES PRIVATE LTD
Approved: May 11, 2021 | RLD: No | RS: No | Type: RX